FAERS Safety Report 7195725-1 (Version None)
Quarter: 2010Q4

REPORT INFORMATION
  Report Type: 
  Country: None (occurrence: None)
  Receive Date: 20101223
  Receipt Date: 20101008
  Transmission Date: 20110411
  Serious: No
  Sender: FDA-Public Use
  Company Number: US-AMGEN-TCS440363

PATIENT

DRUGS (2)
  1. ENBREL [Suspect]
     Indication: PSORIATIC ARTHROPATHY
     Dosage: 50 MG, 2 TIMES/WK
     Route: 058
     Dates: start: 20050115, end: 20100831
  2. ADALIMUMAB [Concomitant]
     Dosage: UNK UNK, UNK
     Dates: start: 20100831

REACTIONS (4)
  - DRUG INEFFECTIVE [None]
  - EYELID OEDEMA [None]
  - OCULAR HYPERAEMIA [None]
  - OCULAR ICTERUS [None]
